FAERS Safety Report 4852589-6 (Version None)
Quarter: 2005Q4

REPORT INFORMATION
  Report Type: 
  Country: None (occurrence: None)
  Receive Date: 20051213
  Receipt Date: 20050916
  Transmission Date: 20060501
  Serious: Yes (Hospitalization)
  Sender: FDA-Public Use
  Company Number: PHEH2005US10354

PATIENT
  Age: 53 Year
  Sex: Female

DRUGS (11)
  1. FEMARA [Suspect]
     Indication: BREAST CANCER
     Dosage: 2.5 MG, QD
     Route: 048
     Dates: start: 20040528
  2. GLUCOTROL [Concomitant]
     Indication: DIABETES MELLITUS
     Dosage: 5 MG, BID
  3. GLUCOTROL [Concomitant]
     Dosage: 10 MG, BID
  4. PLAVIX [Concomitant]
     Indication: CORONARY ARTERY DISEASE
     Dosage: 75 MG, QD
     Dates: start: 20040101
  5. LIPITOR [Concomitant]
     Indication: HYPERLIPIDAEMIA
     Dosage: 10 MG, QHS
     Dates: start: 20050101
  6. ASPIRIN [Suspect]
     Indication: CORONARY ARTERY DISEASE
     Dosage: 81 MG, QD
     Dates: start: 20050101
  7. ASPIRIN [Suspect]
     Dosage: 325 MG, Q6H
  8. GLIPIZIDE [Concomitant]
     Indication: DIABETES MELLITUS
     Dosage: 20 MG, BID
     Dates: start: 20030101
  9. GLIPIZIDE [Concomitant]
     Dosage: 10 MG, BID
  10. HUMALOG [Concomitant]
     Dosage: 100 UNK, TID
     Route: 058
  11. HUMALOG [Concomitant]
     Dosage: SLIDING SCALE

REACTIONS (42)
  - ACUTE CORONARY SYNDROME [None]
  - ANTINUCLEAR ANTIBODY POSITIVE [None]
  - ARTERIOGRAM CORONARY ABNORMAL [None]
  - ARTHRALGIA [None]
  - ARTHRITIS [None]
  - BACK PAIN [None]
  - BLOOD CREATINE PHOSPHOKINASE INCREASED [None]
  - BLOOD CREATINE PHOSPHOKINASE MB INCREASED [None]
  - BLOOD GLUCOSE INCREASED [None]
  - BONE PAIN [None]
  - CHEST PAIN [None]
  - CONNECTIVE TISSUE DISORDER [None]
  - CORONARY ARTERY DISEASE [None]
  - DIPLOPIA [None]
  - DIZZINESS [None]
  - DYSURIA [None]
  - FATIGUE [None]
  - HAEMATOCHEZIA [None]
  - HAEMATOCRIT DECREASED [None]
  - HAEMATOMA [None]
  - HYPERHIDROSIS [None]
  - HYPOAESTHESIA [None]
  - JOINT STIFFNESS [None]
  - MALAISE [None]
  - MUSCULOSKELETAL DISCOMFORT [None]
  - MYOCARDIAL INFARCTION [None]
  - NAUSEA [None]
  - PEPTIC ULCER [None]
  - PERICARDIAL RUB [None]
  - PERICARDITIS [None]
  - RED BLOOD CELL SEDIMENTATION RATE INCREASED [None]
  - STENT PLACEMENT [None]
  - SYSTEMIC LUPUS ERYTHEMATOSUS [None]
  - TREATMENT NONCOMPLIANCE [None]
  - TROPONIN T INCREASED [None]
  - URINARY TRACT INFECTION [None]
  - URINE ODOUR ABNORMAL [None]
  - UTERINE LEIOMYOMA [None]
  - VISION BLURRED [None]
  - VISUAL ACUITY REDUCED [None]
  - VOMITING [None]
  - WHITE BLOOD CELL COUNT INCREASED [None]
